FAERS Safety Report 19665260 (Version 3)
Quarter: 2021Q3

REPORT INFORMATION
  Report Type: Spontaneous
  Country: PT (occurrence: PT)
  Receive Date: 20210806
  Receipt Date: 20210901
  Transmission Date: 20211014
  Serious: Yes (Death, Other)
  Sender: FDA-Public Use
  Company Number: PT-AUROBINDO-AUR-APL-2021-026804

PATIENT
  Age: 60 Year
  Sex: Male

DRUGS (4)
  1. CASPOFUNGIN POWDER FOR CONCENTRATE FOR SOLUTION FOR INFUSION [Suspect]
     Active Substance: CASPOFUNGIN
     Indication: CANDIDA INFECTION
     Dosage: UNK
     Route: 065
  2. CEFTAZIDIME. [Suspect]
     Active Substance: CEFTAZIDIME
     Indication: BACTERIAL INFECTION
     Dosage: UNK
     Route: 065
  3. CIPROFLOXACIN. [Suspect]
     Active Substance: CIPROFLOXACIN
     Indication: BACTERIAL INFECTION
     Dosage: 400 MILLIGRAM (AFTER DIALYSIS ON DIALYSIS DAYS)
     Route: 065
  4. SULFAMETHOXAZOLE AND TRIMETHOPRIM [Suspect]
     Active Substance: SULFAMETHOXAZOLE\TRIMETHOPRIM
     Indication: BACTERIAL INFECTION
     Dosage: 5 MILLIGRAM/KILOGRAM, ONCE A DAY (GRAM?NEGATIVE BACTERIAL INFECTION NOS )
     Route: 065

REACTIONS (3)
  - Drug ineffective [Fatal]
  - Death [Fatal]
  - Drug resistance [Unknown]
